FAERS Safety Report 20968697 (Version 2)
Quarter: 2022Q3

REPORT INFORMATION
  Report Type: Spontaneous
  Country: US (occurrence: US)
  Receive Date: 20220616
  Receipt Date: 20220707
  Transmission Date: 20221026
  Serious: Yes (Hospitalization)
  Sender: FDA-Public Use
  Company Number: US-TEVA-2022-US-2045592

PATIENT
  Age: 53 Year
  Sex: Female

DRUGS (2)
  1. LEUPROLIDE [Suspect]
     Active Substance: LEUPROLIDE
     Indication: Pituitary tumour benign
     Route: 030
     Dates: start: 20200608
  2. LT4 [Concomitant]
     Indication: Thyroxine free decreased
     Dosage: 50 MICROGRAM DAILY;
     Route: 065

REACTIONS (4)
  - Pituitary apoplexy [Recovering/Resolving]
  - Hypopituitarism [Unknown]
  - Visual acuity reduced [Unknown]
  - Visual field defect [Unknown]

NARRATIVE: CASE EVENT DATE: 20200101
